FAERS Safety Report 7935058-6 (Version None)
Quarter: 2011Q4

REPORT INFORMATION
  Report Type: 
  Country: None (occurrence: None)
  Receive Date: 20111122
  Receipt Date: 20111114
  Transmission Date: 20120403
  Serious: Yes (Other)
  Sender: FDA-Public Use
  Company Number: IE-MEDIMMUNE-MEDI-0013941

PATIENT
  Sex: Female
  Weight: 3.17 kg

DRUGS (2)
  1. AMOXICILLIN [Concomitant]
  2. SYNAGIS [Suspect]
     Indication: HEART DISEASE CONGENITAL
     Route: 030
     Dates: start: 20111024, end: 20111024

REACTIONS (3)
  - RASH GENERALISED [None]
  - NASOPHARYNGITIS [None]
  - PALLOR [None]
